FAERS Safety Report 16077852 (Version 1)
Quarter: 2019Q1

REPORT INFORMATION
  Report Type: Report from Study
  Country: US (occurrence: US)
  Receive Date: 20190315
  Receipt Date: 20190315
  Transmission Date: 20190418
  Serious: Yes (Death, Other)
  Sender: FDA-Public Use
  Company Number: US-REGENERON PHARMACEUTICALS, INC.-2019-22043

PATIENT

DRUGS (1)
  1. EYLEA [Suspect]
     Active Substance: AFLIBERCEPT
     Indication: RETINAL ISCHAEMIA
     Dosage: 2 MG, EVERY 28 DAYS IN THE LEFT EYE
     Route: 031
     Dates: start: 20171120

REACTIONS (2)
  - Off label use [Unknown]
  - Death [Fatal]
